FAERS Safety Report 6358362-4 (Version None)
Quarter: 2009Q3

REPORT INFORMATION
  Report Type: 
  Country: None (occurrence: None)
  Receive Date: 20090916
  Receipt Date: 20090904
  Transmission Date: 20100115
  Serious: Yes (Hospitalization)
  Sender: FDA-Public Use
  Company Number: FR-WYE-H09535809

PATIENT
  Sex: Male

DRUGS (14)
  1. INIPOMP [Suspect]
     Dosage: UNKNOWN
     Route: 048
     Dates: start: 20081118, end: 20081205
  2. NIMOTOP [Suspect]
     Dosage: UNKNOWN
     Route: 048
     Dates: start: 20081107, end: 20081205
  3. NIMOTOP [Suspect]
     Dosage: UNKNOWN
     Route: 048
     Dates: start: 20081210, end: 20081215
  4. TAHOR [Suspect]
     Dosage: UNKNOWN
     Dates: start: 20081110, end: 20081219
  5. LOVENOX [Suspect]
     Dosage: 0.4 MG, FREQUENCY UNSPECIFIED
     Dates: start: 20081107, end: 20081219
  6. MOPRAL [Suspect]
     Dosage: UNKNOWN
     Dates: start: 20081205, end: 20081219
  7. CIFLOX [Concomitant]
     Dosage: UNKNOWN
     Dates: start: 20081115, end: 20081117
  8. CIFLOX [Concomitant]
     Dosage: UNKNOWN
  9. CONTRAMAL [Concomitant]
     Dosage: UNKNOWN
     Dates: start: 20081201, end: 20081205
  10. CORVASAL [Concomitant]
     Dosage: UNKNOWN
     Dates: start: 20081109, end: 20081114
  11. XATRAL [Concomitant]
     Dosage: 10 MG, FREQUENCY UNSPECIFIED
  12. PARACETAMOL [Concomitant]
     Dosage: UNKNOWN
     Dates: start: 20081118, end: 20081205
  13. DI-HYDAN [Suspect]
     Dosage: UNKNOWN
     Route: 048
     Dates: start: 20081107, end: 20081219
  14. PARACETAMOL [Concomitant]
     Dosage: UNKNOWN

REACTIONS (5)
  - ACUTE GENERALISED EXANTHEMATOUS PUSTULOSIS [None]
  - DRUG RASH WITH EOSINOPHILIA AND SYSTEMIC SYMPTOMS [None]
  - IMPETIGO [None]
  - PEMPHIGUS [None]
  - SUBCORNEAL PUSTULAR DERMATOSIS [None]
